FAERS Safety Report 7765654-0 (Version None)
Quarter: 2011Q3

REPORT INFORMATION
  Report Type: 
  Country: None (occurrence: None)
  Receive Date: 20110921
  Receipt Date: 20110915
  Transmission Date: 20111222
  Serious: Yes (Other)
  Sender: FDA-Public Use
  Company Number: US-PFIZER INC-2011219170

PATIENT
  Sex: Female
  Weight: 79.365 kg

DRUGS (3)
  1. LYRICA [Suspect]
     Indication: MYOPATHY
     Dosage: UNK, 2X/DAY
     Route: 048
     Dates: start: 20050101
  2. VICODIN [Concomitant]
     Indication: CLAVICLE FRACTURE
     Dosage: UNK
  3. NEXIUM [Concomitant]
     Indication: GASTROOESOPHAGEAL REFLUX DISEASE
     Dosage: UNK

REACTIONS (2)
  - PANCREATIC DISORDER [None]
  - BLOOD GLUCOSE INCREASED [None]
